FAERS Safety Report 9098400 (Version 1)
Quarter: 2013Q1

REPORT INFORMATION
  Report Type: Report from Study
  Country: FR (occurrence: FR)
  Receive Date: 20130213
  Receipt Date: 20130213
  Transmission Date: 20140127
  Serious: Yes (Hospitalization)
  Sender: FDA-Public Use
  Company Number: FR-TEVA-386184USA

PATIENT
  Age: 72 Year
  Sex: Female
  Weight: 57 kg

DRUGS (2)
  1. BENDAMUSTINE [Suspect]
     Route: 042
     Dates: start: 20121206, end: 20130122
  2. OFATUMUMAB [Suspect]
     Route: 042
     Dates: start: 20121206, end: 20130122

REACTIONS (2)
  - Hypersomnia [Recovered/Resolved]
  - Asthenia [Recovered/Resolved]
